FAERS Safety Report 4834091-0 (Version None)
Quarter: 2005Q4

REPORT INFORMATION
  Report Type: 
  Country: None (occurrence: None)
  Receive Date: 20051122
  Receipt Date: 20051117
  Transmission Date: 20060501
  Serious: Yes (Hospitalization)
  Sender: FDA-Public Use
  Company Number: US-SANOFI-SYNTHELABO-F03200500172

PATIENT
  Sex: Male

DRUGS (20)
  1. ELOXATIN [Suspect]
     Indication: COLORECTAL CANCER
     Route: 042
  2. PANITUMUMAB [Suspect]
     Indication: COLORECTAL CANCER
     Route: 042
     Dates: start: 20050620, end: 20050906
  3. FLUOROURACIL [Suspect]
     Route: 042
     Dates: start: 20050906, end: 20050906
  4. BEVACIZUMAB [Concomitant]
     Dosage: UNK
     Route: 042
  5. LEUCOVORIN CALCIUM [Concomitant]
     Dosage: UNK
     Route: 042
  6. LOMOTIL [Concomitant]
     Route: 065
  7. PARAGORIC [Concomitant]
     Route: 065
  8. METRONIDAZOLE [Concomitant]
     Route: 048
  9. VICODIN [Concomitant]
     Route: 048
  10. UNKNOWN [Concomitant]
     Route: 048
  11. ATORVASTATIN CALCIUM [Concomitant]
     Route: 048
  12. ASPIRIN [Concomitant]
     Route: 048
  13. PROCHLORPERAZINE [Concomitant]
     Route: 048
  14. CLONAZEPAM [Concomitant]
     Route: 048
  15. CLINDAMYCIN [Concomitant]
     Dosage: UNK
     Route: 061
  16. POTASSIUM CHLORIDE [Concomitant]
     Route: 048
  17. CHOLESTYRAMINE [Concomitant]
     Dosage: UNK
     Route: 065
  18. LOSARTAN [Concomitant]
     Route: 048
  19. CELECOXIB [Concomitant]
     Dosage: UNK
     Route: 065
  20. POTASSIUM [Concomitant]
     Dosage: UNK
     Route: 065

REACTIONS (3)
  - ENTEROCOLITIS [None]
  - ILEUS [None]
  - MUCOSAL INFLAMMATION [None]
